FAERS Safety Report 8096096-9 (Version None)
Quarter: 2012Q1

REPORT INFORMATION
  Report Type: 
  Country: None (occurrence: None)
  Receive Date: 20120131
  Receipt Date: 20120125
  Transmission Date: 20120608
  Serious: Yes (Death)
  Sender: FDA-Public Use
  Company Number: US-GLAXOSMITHKLINE-A0889182A

PATIENT
  Age: 58 Year
  Sex: Female
  Weight: 85.5 kg

DRUGS (8)
  1. ZOCOR [Concomitant]
  2. ATACAND [Concomitant]
  3. AVANDAMET [Suspect]
     Indication: DIABETES MELLITUS
     Dosage: 1TAB TWICE PER DAY
     Route: 048
     Dates: start: 20040823, end: 20040101
  4. METFORMIN HCL [Concomitant]
  5. LEVOTHYROXINE SODIUM [Concomitant]
  6. AVANDIA [Suspect]
     Indication: TYPE 2 DIABETES MELLITUS
     Route: 048
     Dates: start: 20010817, end: 20091121
  7. PROTONIX [Concomitant]
  8. CLONAZEPAM [Concomitant]

REACTIONS (2)
  - CARDIAC DISORDER [None]
  - DEATH [None]
